FAERS Safety Report 9035786 (Version 1)
Quarter: 2013Q1

REPORT INFORMATION
  Report Type: Report from Study
  Country: US (occurrence: US)
  Receive Date: 20130129
  Receipt Date: 20130129
  Transmission Date: 20140127
  Serious: No
  Sender: FDA-Public Use
  Company Number: US-ABBOTT-12P-163-0926660-00

PATIENT
  Age: 38 Year
  Sex: Female

DRUGS (24)
  1. HUMIRA 40 MG/0.8 ML PEN [Suspect]
     Indication: PSORIATIC ARTHROPATHY
     Dates: start: 201203
  2. XOPENEX [Concomitant]
     Indication: ASTHMA
     Route: 055
  3. PULMICORT [Concomitant]
     Indication: ASTHMA
     Route: 055
  4. DUONEB [Concomitant]
     Indication: ASTHMA
     Route: 055
  5. PROVENTIL [Concomitant]
     Indication: ASTHMA
     Route: 055
  6. SINGULAR [Concomitant]
     Indication: ASTHMA
     Dosage: 1 TABLET DAILY
     Route: 048
  7. LEVOTHYROXINE [Concomitant]
     Indication: THYROID DISORDER
     Dosage: 1 TABLET DAILY
     Route: 048
  8. VITAMIN D [Concomitant]
     Indication: VITAMIN D DEFICIENCY
     Dosage: A LOT
  9. VITAMIN B 12 [Concomitant]
     Indication: VITAMIN B12 DEFICIENCY
     Dosage: DAILY
     Route: 048
  10. METHADONE [Concomitant]
     Indication: PAIN
     Dosage: 6 TABLETS DAILY
     Route: 048
  11. SEROQUEL [Concomitant]
     Indication: BIPOLAR DISORDER
     Dosage: 2 TABLETS DAILY
     Route: 048
  12. SEROQUEL [Concomitant]
     Indication: BIPOLAR I DISORDER
  13. LORAZEPAM [Concomitant]
     Indication: BIPOLAR DISORDER
     Dosage: AS NEEDED
     Route: 048
  14. LORAZEPAM [Concomitant]
     Indication: BIPOLAR I DISORDER
  15. CYMBALTA [Concomitant]
     Indication: BIPOLAR DISORDER
     Dosage: 30 MG AND 60 MG EACH ONE DAILY
     Route: 048
  16. CYMBALTA [Concomitant]
     Indication: BIPOLAR I DISORDER
  17. ABILIFY [Concomitant]
     Indication: BIPOLAR DISORDER
     Dosage: 5 MG DAILY
     Route: 048
  18. ABILIFY [Concomitant]
     Indication: BIPOLAR I DISORDER
  19. METHOTREXATE [Concomitant]
     Indication: PSORIATIC ARTHROPATHY
     Dosage: 2.5 MG X 3 TABLETS WEEKLY (SUNDAY)
     Route: 048
  20. FOLIC ACID [Concomitant]
     Indication: PSORIATIC ARTHROPATHY
     Dosage: 1 TABLET DAILY
     Route: 048
  21. TIZANIDINE [Concomitant]
     Indication: MUSCLE RELAXANT THERAPY
     Dosage: 4 MG X 4 TABLETS AT BEDTIME
     Route: 048
  22. TOPAMAX [Concomitant]
     Indication: MIGRAINE
     Dosage: 100MG, 1 TABLET IN AM AND 2 TABLETS IN PM
     Route: 048
  23. ASACOL [Concomitant]
     Indication: CROHN^S DISEASE
     Dosage: 400 MG X 2 TABLETS DAILY
     Route: 048
  24. CRYSELLE [Concomitant]
     Indication: CONTRACEPTION
     Dosage: 1 TABLET DAILY
     Route: 048

REACTIONS (2)
  - Drug ineffective [Not Recovered/Not Resolved]
  - Pain [Not Recovered/Not Resolved]
